FAERS Safety Report 16753503 (Version 1)
Quarter: 2019Q3

REPORT INFORMATION
  Report Type: Spontaneous
  Country: CA (occurrence: CA)
  Receive Date: 20190829
  Receipt Date: 20190829
  Transmission Date: 20191005
  Serious: Yes (Other)
  Sender: FDA-Public Use
  Company Number: CA-TEVA-2019-CA-1097877

PATIENT
  Age: 72 Year
  Sex: Male

DRUGS (23)
  1. HYDROXYCHLOROQUINE SULFATE. [Concomitant]
     Active Substance: HYDROXYCHLOROQUINE SULFATE
  2. IPRATROPIUM BROMIDE/SALBUTAMOL SULFATE [Concomitant]
     Active Substance: ALBUTEROL SULFATE\IPRATROPIUM BROMIDE
  3. VENTOLIN [Concomitant]
     Active Substance: ALBUTEROL SULFATE
     Dosage: 8 DOSAGE FORMS DAILY;
  4. ZOPICLONE [Concomitant]
     Active Substance: ZOPICLONE
     Route: 048
  5. HYDROXYCHLOROQUINE [Concomitant]
     Active Substance: HYDROXYCHLOROQUINE
     Route: 048
  6. SYMBICORT [Concomitant]
     Active Substance: BUDESONIDE\FORMOTEROL FUMARATE DIHYDRATE
     Route: 055
  7. SODIUM BICARBONATE. [Concomitant]
     Active Substance: SODIUM BICARBONATE
     Dosage: 1000 MILLIGRAM DAILY;
     Route: 048
  8. SULFASALAZINE. [Concomitant]
     Active Substance: SULFASALAZINE
     Indication: RHEUMATOID ARTHRITIS
  9. TERAZOSIN [Concomitant]
     Active Substance: TERAZOSIN HYDROCHLORIDE
     Route: 048
  10. HYDRALAZINE [Concomitant]
     Active Substance: HYDRALAZINE HYDROCHLORIDE
     Dosage: 30 MILLIGRAM DAILY;
     Route: 048
  11. LEFLUNOMIDE. [Concomitant]
     Active Substance: LEFLUNOMIDE
  12. ROSUVASTATIN. [Concomitant]
     Active Substance: ROSUVASTATIN
     Route: 048
  13. METOPROLOL. [Concomitant]
     Active Substance: METOPROLOL
     Dosage: 150 MILLIGRAM DAILY;
     Route: 048
  14. ENBREL [Concomitant]
     Active Substance: ETANERCEPT
     Indication: RHEUMATOID ARTHRITIS
  15. KAYEXALATE [Concomitant]
     Active Substance: SODIUM POLYSTYRENE SULFONATE
     Route: 048
  16. PANTOPRAZOLE [Concomitant]
     Active Substance: PANTOPRAZOLE
     Route: 048
  17. METHOTREXATE. [Suspect]
     Active Substance: METHOTREXATE
     Indication: RHEUMATOID ARTHRITIS
     Route: 065
  18. PANTOPRAZOLE [Concomitant]
     Active Substance: PANTOPRAZOLE
     Route: 048
  19. FUROSEMIDE. [Concomitant]
     Active Substance: FUROSEMIDE
     Route: 048
  20. ATROVENT [Concomitant]
     Active Substance: IPRATROPIUM BROMIDE
  21. FERROUS POLYSACCHARIDE [Concomitant]
     Route: 048
  22. FERAMAX 150 [Concomitant]
     Route: 048
  23. RITUXAN [Concomitant]
     Active Substance: RITUXIMAB

REACTIONS (29)
  - Abdominal pain upper [Not Recovered/Not Resolved]
  - Chronic obstructive pulmonary disease [Not Recovered/Not Resolved]
  - Intermittent claudication [Not Recovered/Not Resolved]
  - Dysuria [Not Recovered/Not Resolved]
  - Myocardial infarction [Not Recovered/Not Resolved]
  - Pancytopenia [Not Recovered/Not Resolved]
  - Synovial disorder [Not Recovered/Not Resolved]
  - Aortic aneurysm [Not Recovered/Not Resolved]
  - Malaise [Not Recovered/Not Resolved]
  - Cervical spinal stenosis [Not Recovered/Not Resolved]
  - Coronary artery disease [Not Recovered/Not Resolved]
  - Diverticulum [Not Recovered/Not Resolved]
  - Peripheral vascular disorder [Not Recovered/Not Resolved]
  - Renal aneurysm [Not Recovered/Not Resolved]
  - Asthma-chronic obstructive pulmonary disease overlap syndrome [Not Recovered/Not Resolved]
  - Back pain [Not Recovered/Not Resolved]
  - Cervical radiculopathy [Not Recovered/Not Resolved]
  - Gait disturbance [Not Recovered/Not Resolved]
  - Inguinal hernia [Not Recovered/Not Resolved]
  - Pain in extremity [Not Recovered/Not Resolved]
  - Peripheral artery occlusion [Not Recovered/Not Resolved]
  - Pneumonia [Not Recovered/Not Resolved]
  - Postoperative wound infection [Not Recovered/Not Resolved]
  - Renal failure [Not Recovered/Not Resolved]
  - Wound infection [Not Recovered/Not Resolved]
  - Lumbar hernia [Not Recovered/Not Resolved]
  - Condition aggravated [Not Recovered/Not Resolved]
  - Periarthritis [Not Recovered/Not Resolved]
  - Peripheral venous disease [Not Recovered/Not Resolved]
